FAERS Safety Report 12562428 (Version 2)
Quarter: 2016Q3

REPORT INFORMATION
  Report Type: Spontaneous
  Country: US (occurrence: US)
  Receive Date: 20160715
  Receipt Date: 20160809
  Transmission Date: 20161109
  Serious: No
  Sender: FDA-Public Use
  Company Number: US-BEH-2016061964

PATIENT
  Sex: Female
  Weight: 69 kg

DRUGS (25)
  1. SEROQUEL [Concomitant]
     Active Substance: QUETIAPINE FUMARATE
  2. IRON [Concomitant]
     Active Substance: IRON
  3. DEXTROSE. [Concomitant]
     Active Substance: DEXTROSE
  4. VITAMIN D [Concomitant]
     Active Substance: CHOLECALCIFEROL
  5. SODIUM CHLORIDE. [Concomitant]
     Active Substance: SODIUM CHLORIDE
  6. ZYRTEC [Concomitant]
     Active Substance: CETIRIZINE HYDROCHLORIDE
  7. MULTIVITAMIN [Concomitant]
     Active Substance: VITAMINS
  8. NORMAL SALINE [Concomitant]
     Active Substance: SODIUM CHLORIDE
  9. GAMMAGARD [Concomitant]
     Active Substance: HUMAN IMMUNOGLOBULIN G
  10. PROZAC [Concomitant]
     Active Substance: FLUOXETINE HYDROCHLORIDE
  11. OMEGA [Concomitant]
     Active Substance: CONVALLARIA MAJALIS\CRATAEGUS LAEVIGATA LEAF\PROXYPHYLLINE
  12. MAXALT [Concomitant]
     Active Substance: RIZATRIPTAN BENZOATE
  13. ZOLPIDEM [Concomitant]
     Active Substance: ZOLPIDEM\ZOLPIDEM TARTRATE
  14. ACETAMINOPHEN. [Concomitant]
     Active Substance: ACETAMINOPHEN
  15. FLORASTOR [Concomitant]
     Active Substance: SACCHAROMYCES CEREVISIAE
  16. VITAMIN C [Concomitant]
     Active Substance: ASCORBIC ACID
  17. PRIVIGEN [Suspect]
     Active Substance: HUMAN IMMUNOGLOBULIN G
     Indication: IMMUNODEFICIENCY COMMON VARIABLE
     Route: 042
     Dates: start: 20160208
  18. EPIPEN [Concomitant]
     Active Substance: EPINEPHRINE
  19. FLONASE [Concomitant]
     Active Substance: FLUTICASONE PROPIONATE
  20. PROMETHAZINE [Concomitant]
     Active Substance: PROMETHAZINE\PROMETHAZINE HYDROCHLORIDE
  21. ALPRAZOLAM. [Concomitant]
     Active Substance: ALPRAZOLAM
  22. KETOROLAC [Concomitant]
     Active Substance: KETOROLAC\KETOROLAC TROMETHAMINE
  23. SOLU-MEDROL [Concomitant]
     Active Substance: METHYLPREDNISOLONE SODIUM SUCCINATE
  24. LIDODERM [Concomitant]
     Active Substance: LIDOCAINE
  25. MOTRIN [Concomitant]
     Active Substance: IBUPROFEN

REACTIONS (1)
  - Headache [Unknown]
